FAERS Safety Report 24768179 (Version 1)
Quarter: 2024Q4

REPORT INFORMATION
  Report Type: Spontaneous
  Country: US (occurrence: None)
  Receive Date: 20241223
  Receipt Date: 20241223
  Transmission Date: 20250115
  Serious: Yes (Other)
  Sender: Public
  Company Number: None

PATIENT
  Age: 43 Year
  Sex: Male
  Weight: 74.25 kg

DRUGS (2)
  1. ESCITALOPRAM [Suspect]
     Active Substance: ESCITALOPRAM OXALATE
     Indication: Stress
     Dosage: OTHER QUANTITY : 1 CAPSULE(S);?
     Route: 048
  2. SYMBICORT [Concomitant]
     Active Substance: BUDESONIDE\FORMOTEROL FUMARATE DIHYDRATE

REACTIONS (17)
  - Loss of libido [None]
  - Genital hypoaesthesia [None]
  - Heart rate increased [None]
  - Blood pressure increased [None]
  - Tinnitus [None]
  - Brain fog [None]
  - Withdrawal syndrome [None]
  - Influenza like illness [None]
  - Muscle contractions involuntary [None]
  - Dizziness [None]
  - Pollakiuria [None]
  - Penile burning sensation [None]
  - Testicular pain [None]
  - Arthralgia [None]
  - Abdominal pain [None]
  - Anorgasmia [None]
  - Penile curvature [None]

NARRATIVE: CASE EVENT DATE: 20220308
